FAERS Safety Report 17870534 (Version 4)
Quarter: 2020Q2

REPORT INFORMATION
  Report Type: Spontaneous
  Country: US (occurrence: US)
  Receive Date: 20200608
  Receipt Date: 20200615
  Transmission Date: 20200714
  Serious: Yes (Other)
  Sender: FDA-Public Use
  Company Number: US-PFIZER INC-2020221664

PATIENT
  Age: 37 Year
  Sex: Female

DRUGS (1)
  1. SERTRALINE HCL [Suspect]
     Active Substance: SERTRALINE HYDROCHLORIDE
     Dosage: 200 MG
     Dates: start: 20200531

REACTIONS (11)
  - Skin odour abnormal [Unknown]
  - Mood swings [Unknown]
  - Abnormal dreams [Unknown]
  - Dry mouth [Unknown]
  - Aggression [Unknown]
  - Affect lability [Unknown]
  - Anger [Unknown]
  - Psychiatric symptom [Unknown]
  - Drug ineffective [Unknown]
  - Thirst [Unknown]
  - Suicidal ideation [Unknown]

NARRATIVE: CASE EVENT DATE: 20200604
